FAERS Safety Report 14881631 (Version 1)
Quarter: 2018Q2

REPORT INFORMATION
  Report Type: Spontaneous
  Country: None (occurrence: FR)
  Receive Date: 20180511
  Receipt Date: 20180511
  Transmission Date: 20180711
  Serious: Yes (Disabling)
  Sender: FDA-Public Use
  Company Number: FR-MEDAC PHARMA, INC.-2047620

PATIENT
  Age: 50 Year
  Sex: Male
  Weight: 113.5 kg

DRUGS (6)
  1. ATORVASTATIN CALCIUM. [Concomitant]
     Active Substance: ATORVASTATIN CALCIUM
     Route: 048
     Dates: start: 2015
  2. HUMIRA [Concomitant]
     Active Substance: ADALIMUMAB
     Route: 058
     Dates: start: 2009, end: 201509
  3. METOJECT [Suspect]
     Active Substance: METHOTREXATE SODIUM
     Indication: RHEUMATIC DISORDER
     Route: 030
     Dates: start: 2006
  4. VALSARTAN. [Concomitant]
     Active Substance: VALSARTAN
     Route: 048
     Dates: start: 2009
  5. METFORMIN [Concomitant]
     Active Substance: METFORMIN HYDROCHLORIDE
     Route: 048
     Dates: start: 2009
  6. MOVICOL [Concomitant]
     Active Substance: POLYETHYLENE GLYCOL 3350\POTASSIUM CHLORIDE\SODIUM BICARBONATE\SODIUM CHLORIDE
     Route: 048
     Dates: start: 2015

REACTIONS (2)
  - Myelitis [Not Recovered/Not Resolved]
  - Demyelination [Not Recovered/Not Resolved]

NARRATIVE: CASE EVENT DATE: 201509
